FAERS Safety Report 9460128 (Version 1)
Quarter: 2013Q3

REPORT INFORMATION
  Report Type: Spontaneous
  Country: TW (occurrence: TW)
  Receive Date: 20130815
  Receipt Date: 20130815
  Transmission Date: 20140515
  Serious: Yes (Other)
  Sender: FDA-Public Use
  Company Number: PHHY2013TW085363

PATIENT
  Age: 39 Year
  Sex: Female

DRUGS (4)
  1. CLOZAPINE [Suspect]
     Indication: SCHIZOPHRENIA
     Dosage: 400 MG, DAILY
  2. CLOZAPINE [Suspect]
     Dosage: 350 MG, DAILY
  3. SERTRALINE [Suspect]
     Indication: EMOTIONAL DISTRESS
     Dosage: 300 MG, DAILY
  4. ESCITALOPRAM [Concomitant]
     Dosage: UNK UKN, UNK

REACTIONS (4)
  - Obsessive-compulsive disorder [Recovering/Resolving]
  - Psychotic disorder [Unknown]
  - Drug interaction [Unknown]
  - Antipsychotic drug level decreased [Unknown]
